FAERS Safety Report 10404237 (Version 2)
Quarter: 2014Q2

REPORT INFORMATION
  Report Type: Spontaneous
  Country: US (occurrence: None)
  Receive Date: 20140214
  Receipt Date: 20140625
  Transmission Date: 20141212
  Serious: No
  Sender: FDA-Public Use
  Company Number: A-US2014-93893

PATIENT
  Age: 38 Year
  Sex: Male

DRUGS (2)
  1. OPSUMIT [Suspect]
     Indication: PULMONARY ARTERIAL HYPERTENSION
     Dosage: 10 MG, UNK, ORAL
     Route: 048
     Dates: start: 201312, end: 201401
  2. ADCIRCA ( TADALAFIL) [Concomitant]

REACTIONS (3)
  - Dyspnoea [None]
  - Impaired healing [None]
  - Malaise [None]
